FAERS Safety Report 5061179-4 (Version None)
Quarter: 2006Q3

REPORT INFORMATION
  Report Type: 
  Country: None (occurrence: None)
  Receive Date: 20060725
  Receipt Date: 20060629
  Transmission Date: 20061208
  Serious: Yes (Other)
  Sender: FDA-Public Use
  Company Number: US-ROCHE-454135

PATIENT
  Age: 33 Year
  Sex: Male

DRUGS (2)
  1. COPEGUS [Suspect]
     Route: 048
     Dates: start: 20051215
  2. PEGASYS [Suspect]
     Route: 058
     Dates: start: 20051215

REACTIONS (11)
  - ABORTION SPONTANEOUS [None]
  - ANAEMIA [None]
  - ANGER [None]
  - DYSPNOEA [None]
  - EAR INFECTION [None]
  - FATIGUE [None]
  - HEART RATE INCREASED [None]
  - IMPAIRED HEALING [None]
  - IRRITABILITY [None]
  - MISCARRIAGE OF PARTNER [None]
  - PREGNANCY OF PARTNER [None]
